FAERS Safety Report 11390072 (Version 1)
Quarter: 2015Q3

REPORT INFORMATION
  Report Type: Spontaneous
  Country: US (occurrence: US)
  Receive Date: 20150818
  Receipt Date: 20150818
  Transmission Date: 20151125
  Serious: Yes (Hospitalization)
  Sender: FDA-Public Use
  Company Number: US-ROCHE-1621505

PATIENT
  Sex: Male
  Weight: 137.56 kg

DRUGS (28)
  1. AMLODIPIN [Concomitant]
     Active Substance: AMLODIPINE BESYLATE
     Route: 048
     Dates: start: 20150528
  2. U-500 INSULIN [Concomitant]
     Dosage: INJECT 22 UNITS IN AM, 22 UNIT IN LUNCH AND 16 UNITS WITH AND 16 UNITSWITH DINNER
     Route: 058
     Dates: start: 20150313
  3. ORPHENADRINE CITRATE. [Concomitant]
     Active Substance: ORPHENADRINE CITRATE
     Dosage: IN MORNING AND IN EVENING
     Route: 048
     Dates: start: 20150522
  4. EPIPEN [Concomitant]
     Active Substance: EPINEPHRINE
     Dosage: 0.3MG/0.3ML (1:1000)
     Route: 030
     Dates: start: 20140425
  5. NORVASC [Concomitant]
     Active Substance: AMLODIPINE BESYLATE
     Route: 048
  6. SPIRIVA [Concomitant]
     Active Substance: TIOTROPIUM BROMIDE MONOHYDRATE
     Route: 050
  7. COENZYME Q10 [Concomitant]
     Active Substance: UBIDECARENONE
     Route: 048
  8. FLONASE (UNITED STATES) [Concomitant]
     Dosage: 50MCG/ACTUATION EACH NOSTRIL
     Route: 045
     Dates: start: 20150126
  9. LIPITOR [Concomitant]
     Active Substance: ATORVASTATIN CALCIUM
     Route: 048
  10. PREDNISONE. [Concomitant]
     Active Substance: PREDNISONE
     Route: 048
     Dates: start: 20150707
  11. ALBUTEROL SULFATE. [Concomitant]
     Active Substance: ALBUTEROL SULFATE
     Dosage: 2.5MG/3ML (0.083%)
     Route: 050
  12. ASPIRIN. [Concomitant]
     Active Substance: ASPIRIN
     Route: 048
  13. LASIX [Concomitant]
     Active Substance: FUROSEMIDE
     Route: 048
  14. PROTONIX (UNITED STATES) [Concomitant]
     Route: 048
     Dates: start: 20150528
  15. XOLAIR [Suspect]
     Active Substance: OMALIZUMAB
     Indication: OBSTRUCTIVE AIRWAYS DISORDER
     Route: 058
     Dates: start: 20131001
  16. CARISOPRODOL. [Concomitant]
     Active Substance: CARISOPRODOL
     Dosage: BEDTIME
     Route: 048
  17. CLONIDIN [Concomitant]
     Active Substance: CLONIDINE
     Route: 048
     Dates: start: 20150125
  18. VITAMIN D2 [Concomitant]
     Active Substance: ERGOCALCIFEROL
     Dosage: 50000 UNIT
     Route: 048
     Dates: start: 20150528
  19. ZYRTEC [Concomitant]
     Active Substance: CETIRIZINE HYDROCHLORIDE
     Route: 048
  20. FOSAMAX [Concomitant]
     Active Substance: ALENDRONATE SODIUM
     Dosage: IN MORNING BEFORE FIRST FOOD, BEVERAGE OR MEDICATION
     Route: 048
  21. GUAIFENESIN. [Concomitant]
     Active Substance: GUAIFENESIN
     Route: 048
  22. MUCINEX [Concomitant]
     Active Substance: GUAIFENESIN
     Route: 048
  23. PANTOPRAZOLE SODIUM. [Concomitant]
     Active Substance: PANTOPRAZOLE SODIUM
     Route: 048
  24. POTASSIUM CHLORIDE. [Concomitant]
     Active Substance: POTASSIUM CHLORIDE
     Route: 048
     Dates: start: 20150702
  25. PROBIOTIC (ENZYMES, INC) [Concomitant]
     Route: 048
  26. SYMBICORT [Concomitant]
     Active Substance: BUDESONIDE\FORMOTEROL FUMARATE DIHYDRATE
     Dosage: 160-4.5 MCG/ACTUATION?INHALE 2 PUFFS BY INHALTION ROUTE 2 TIMES PER DAY IN THE MORNING AND EVENING
     Route: 050
  27. PROVENTIL HFA [Concomitant]
     Active Substance: ALBUTEROL SULFATE
     Dosage: 90 MCG/ACTUATION INHALE 2 PUFFS BY INHALTION ROUTE ONCE A DAILY
     Route: 065
     Dates: start: 20140312
  28. VITAMIN C [Concomitant]
     Active Substance: ASCORBIC ACID
     Route: 048

REACTIONS (3)
  - Weight increased [Unknown]
  - Fluid overload [Unknown]
  - Infective exacerbation of chronic obstructive airways disease [Unknown]
